FAERS Safety Report 24241146 (Version 2)
Quarter: 2024Q3

REPORT INFORMATION
  Report Type: Report from Study
  Country: US (occurrence: US)
  Receive Date: 20240823
  Receipt Date: 20240917
  Transmission Date: 20241017
  Serious: Yes (Hospitalization)
  Sender: JOHNSON AND JOHNSON
  Company Number: US-JNJFOC-20240848513

PATIENT
  Age: 77 Year
  Sex: Female

DRUGS (17)
  1. SIMPONI ARIA [Suspect]
     Active Substance: GOLIMUMAB
     Indication: Rheumatoid arthritis
     Dosage: AGE AT THE TIME OF VACCINATION: 77?NUMBER OF PREVIOUS DOSES FOR THIS VACCINE: 2
     Route: 041
  2. ATORVASTATIN [Concomitant]
     Active Substance: ATORVASTATIN
     Indication: Blood cholesterol
  3. FLUOXETINE [Concomitant]
     Active Substance: FLUOXETINE HYDROCHLORIDE
     Indication: Depression
  4. GLIMEPIRIDE [Concomitant]
     Active Substance: GLIMEPIRIDE
     Indication: Type 2 diabetes mellitus
  5. HYDROXYCHLOROQUINE [Concomitant]
     Active Substance: HYDROXYCHLOROQUINE
     Indication: Rheumatoid arthritis
  6. LEFLUNOMIDE [Concomitant]
     Active Substance: LEFLUNOMIDE
     Indication: Rheumatoid arthritis
  7. LOSARTAN [Concomitant]
     Active Substance: LOSARTAN\LOSARTAN POTASSIUM
     Indication: Hypertension
  8. ZENPEP [Concomitant]
     Active Substance: PANCRELIPASE AMYLASE\PANCRELIPASE LIPASE\PANCRELIPASE PROTEASE
     Indication: Pancreatic failure
  9. ASPIRIN [Concomitant]
     Active Substance: ASPIRIN
  10. BIOTIN [Concomitant]
     Active Substance: BIOTIN
  11. CALCIUM\CHOLECALCIFEROL [Concomitant]
     Active Substance: CALCIUM\CHOLECALCIFEROL
  12. FISH OIL [Concomitant]
     Active Substance: FISH OIL
  13. FOLIC ACID [Concomitant]
     Active Substance: FOLIC ACID
  14. MAGNESIUM MALATE [Concomitant]
     Active Substance: MAGNESIUM MALATE
  15. MATURE MULTIVITAMINS [Concomitant]
  16. SYSTANE (HYPROMELLOSE 2910 (4000 MPA.S)) [Concomitant]
     Active Substance: HYPROMELLOSE 2910 (4000 MPA.S)
     Indication: Dry eye
  17. VITAMIN D3 [Concomitant]
     Active Substance: CHOLECALCIFEROL

REACTIONS (3)
  - Meningitis bacterial [Recovering/Resolving]
  - Meningitis viral [Recovering/Resolving]
  - Urinary tract infection [Recovering/Resolving]
